FAERS Safety Report 5067716-8 (Version None)
Quarter: 2006Q3

REPORT INFORMATION
  Report Type: 
  Country: None (occurrence: None)
  Receive Date: 20060728
  Receipt Date: 20060712
  Transmission Date: 20061208
  Serious: Yes (Death)
  Sender: FDA-Public Use
  Company Number: US200606005418

PATIENT
  Age: 65 Year
  Sex: Female

DRUGS (2)
  1. FORTEO [Suspect]
     Dates: start: 20051012
  2. FORTEO [Concomitant]

REACTIONS (2)
  - ACUTE CORONARY SYNDROME [None]
  - ARTERIOSCLEROSIS [None]
